FAERS Safety Report 4816132-X (Version None)
Quarter: 2005Q4

REPORT INFORMATION
  Report Type: 
  Country: None (occurrence: None)
  Receive Date: 20051031
  Receipt Date: 20051021
  Transmission Date: 20060501
  Serious: Yes (Hospitalization)
  Sender: FDA-Public Use
  Company Number: US-ABBOTT-05P-163-0314782-00

PATIENT
  Sex: Female
  Weight: 105 kg

DRUGS (5)
  1. HUMIRA 40 MG/ 0.8 ML PRE-FILLED SYRINGE [Suspect]
     Indication: RHEUMATOID ARTHRITIS
     Route: 058
     Dates: start: 20051007
  2. METHOTREXATE [Concomitant]
     Indication: RHEUMATOID ARTHRITIS
     Route: 058
     Dates: start: 20050101
  3. FOLIC ACID [Concomitant]
     Indication: VITAMIN SUPPLEMENTATION
     Route: 048
     Dates: start: 20000101
  4. PREDNISONE [Concomitant]
     Indication: RHEUMATOID ARTHRITIS
     Route: 048
     Dates: start: 20000101
  5. ATENOLOL [Concomitant]
     Indication: BLOOD PRESSURE INCREASED
     Route: 048
     Dates: start: 20000101

REACTIONS (4)
  - COUGH [None]
  - HEART RATE DECREASED [None]
  - RHINORRHOEA [None]
  - SYNCOPE [None]
